FAERS Safety Report 9772796 (Version 1)
Quarter: 2013Q4

REPORT INFORMATION
  Report Type: Spontaneous
  Country: US (occurrence: None)
  Receive Date: 20131218
  Receipt Date: 20131218
  Transmission Date: 20140711
  Serious: Yes (Other)
  Sender: FDA-Public Use
  Company Number: None

PATIENT
  Age: 46 Year
  Sex: Female
  Weight: 50.8 kg

DRUGS (6)
  1. GILENYA [Suspect]
     Indication: MULTIPLE SCLEROSIS
     Dosage: 1 CAPSULES, QD, ORAL
     Route: 048
     Dates: start: 20130311, end: 20130904
  2. BACLOFEN [Concomitant]
  3. WELLBUTRIN SR [Concomitant]
  4. DANTROLENE [Concomitant]
  5. TEMAZEPAM [Concomitant]
  6. TIZANIDINE [Concomitant]

REACTIONS (1)
  - Neutropenia [None]
